FAERS Safety Report 7483652-1 (Version None)
Quarter: 2011Q2

REPORT INFORMATION
  Report Type: 
  Country: None (occurrence: None)
  Receive Date: 20110517
  Receipt Date: 20110515
  Transmission Date: 20111010
  Serious: No
  Sender: FDA-Public Use
  Company Number: US-PFIZER INC-2011103961

PATIENT
  Sex: Female
  Weight: 77.098 kg

DRUGS (4)
  1. CHANTIX [Suspect]
     Dosage: UNK
     Dates: start: 20110501, end: 20110515
  2. AMITRIPTYLINE [Concomitant]
     Dosage: UNK
  3. CHANTIX [Suspect]
     Indication: SMOKING CESSATION THERAPY
     Dosage: 0.5 MG, 1X/DAY
     Route: 048
     Dates: start: 20090101
  4. SIMVASTATIN [Concomitant]
     Indication: BLOOD CHOLESTEROL INCREASED
     Dosage: UNK

REACTIONS (2)
  - PRURITUS [None]
  - RASH [None]
